FAERS Safety Report 6349329-0 (Version None)
Quarter: 2009Q3

REPORT INFORMATION
  Report Type: 
  Country: None (occurrence: None)
  Receive Date: 20090911
  Receipt Date: 20090903
  Transmission Date: 20100115
  Serious: Yes (Other)
  Sender: FDA-Public Use
  Company Number: B0592578A

PATIENT
  Age: 13 Year
  Sex: Male

DRUGS (1)
  1. AUGMENTIN '125' [Suspect]
     Indication: OSTEITIS
     Route: 048
     Dates: start: 20090701, end: 20090701

REACTIONS (2)
  - CHOKING [None]
  - FOREIGN BODY TRAUMA [None]
